FAERS Safety Report 6537969-5 (Version None)
Quarter: 2010Q1

REPORT INFORMATION
  Report Type: 
  Country: None (occurrence: None)
  Receive Date: 20100111
  Receipt Date: 20091229
  Transmission Date: 20100710
  Serious: Yes (Hospitalization)
  Sender: FDA-Public Use
  Company Number: CIP09003604

PATIENT
  Age: 82 Year
  Sex: Female

DRUGS (8)
  1. FURADANTIN [Suspect]
     Indication: BACTERIAL TEST POSITIVE
     Dosage: 50 MG, ORAL
     Route: 048
     Dates: start: 20091008, end: 20091018
  2. MUTAGRIP /00027001/(INFLUENZA VIRUS VACCINE POLYVALENT) [Suspect]
     Indication: ANTIVIRAL PROPHYLAXIS
     Dosage: 1 DF, 1 ONLY
     Dates: start: 20091208, end: 20091208
  3. TANAKAN  /01003103/ (GINKGO BILOBA EXTRACT) [Concomitant]
  4. PRAVASTATIN SODIUM [Concomitant]
  5. ISOPTIN [Concomitant]
  6. BIPRETERAX (INDAPAMIDE, PERINDOPRIL ERBUMINE) [Concomitant]
  7. ASPIRIN [Concomitant]
  8. RHINOTROPHYL (ETHANOLAMINE TENOATE, FRAMYCETIN SULFATE) [Concomitant]

REACTIONS (13)
  - ALANINE AMINOTRANSFERASE INCREASED [None]
  - BLOOD ALKALINE PHOSPHATASE INCREASED [None]
  - COLLAPSE OF LUNG [None]
  - DRUG RASH WITH EOSINOPHILIA AND SYSTEMIC SYMPTOMS [None]
  - GAMMA-GLUTAMYLTRANSFERASE INCREASED [None]
  - HEPATIC ENZYME INCREASED [None]
  - LEUKOCYTOSIS [None]
  - LUNG DISORDER [None]
  - PLEURAL EFFUSION [None]
  - PULMONARY EOSINOPHILIA [None]
  - RASH MACULO-PAPULAR [None]
  - SEPTIC SHOCK [None]
  - SKIN LESION [None]
